FAERS Safety Report 9294608 (Version 2)
Quarter: 2013Q4

REPORT INFORMATION
  Report Type: Spontaneous
  Country: US (occurrence: US)
  Receive Date: 20130517
  Receipt Date: 20131029
  Transmission Date: 20140711
  Serious: No
  Sender: FDA-Public Use
  Company Number: US-PFIZER INC-2013150963

PATIENT
  Age: 47 Year
  Sex: Male
  Weight: 107 kg

DRUGS (8)
  1. LYRICA [Suspect]
     Indication: FIBROMYALGIA
     Dosage: 75 MG, 2X/DAY
     Dates: start: 2012, end: 201310
  2. XANAX [Suspect]
     Indication: SLEEP DISORDER
     Dosage: 2 MG, 2X/DAY
     Route: 048
     Dates: start: 2012
  3. XANAX [Suspect]
     Dosage: 2 MG, UNK
     Route: 048
  4. OXYCODONE HYDROCHLORIDE [Suspect]
     Indication: NERVE INJURY
     Dosage: 30 MG, 5X/DAY
  5. OXYCODONE HYDROCHLORIDE [Suspect]
     Indication: BREAKTHROUGH PAIN
  6. OXYCONTIN [Suspect]
     Indication: NERVE INJURY
     Dosage: 80 MG, UNK
  7. ZANAFLEX [Suspect]
     Dosage: 4 MG, UNK
  8. FLEXERIL [Concomitant]
     Indication: MUSCLE SPASMS
     Dosage: 5 MG, 2X/DAY

REACTIONS (6)
  - Intentional drug misuse [Unknown]
  - Local swelling [Unknown]
  - Joint swelling [Unknown]
  - Depression [Unknown]
  - Pain in extremity [Unknown]
  - Hypoaesthesia [Unknown]
